FAERS Safety Report 5709584-4 (Version None)
Quarter: 2008Q2

REPORT INFORMATION
  Report Type: 
  Country: None (occurrence: None)
  Receive Date: 20080418
  Receipt Date: 20080409
  Transmission Date: 20081010
  Serious: Yes (Hospitalization)
  Sender: FDA-Public Use
  Company Number: JP-ROCHE-551840

PATIENT
  Sex: Male
  Weight: 59.5 kg

DRUGS (9)
  1. METHOXY POLYETHYLENE GLYCOL-EPOETIN BETA [Suspect]
     Route: 058
     Dates: start: 20071017, end: 20071031
  2. METHOXY POLYETHYLENE GLYCOL-EPOETIN BETA [Suspect]
     Route: 058
     Dates: start: 20071114, end: 20071128
  3. METHOXY POLYETHYLENE GLYCOL-EPOETIN BETA [Suspect]
     Route: 058
     Dates: start: 20071212, end: 20071212
  4. METHOXY POLYETHYLENE GLYCOL-EPOETIN BETA [Suspect]
     Route: 058
     Dates: start: 20071226, end: 20071226
  5. METHOXY POLYETHYLENE GLYCOL-EPOETIN BETA [Suspect]
     Dosage: STOP DATE = LAST DOSE. TEMPORARILY INTERRUPTED ON 05 MARCH 2008.
     Route: 058
     Dates: start: 20080109, end: 20080206
  6. GASTER D [Concomitant]
     Dosage: START PRIOR TO INITIATION OF STUDY MEDICATION.
  7. DIOVAN [Concomitant]
     Dosage: START PRIOR TO INITIATION OF STUDY MEDICATION.
  8. NORVASC [Concomitant]
     Dosage: START PRIOR TO INITIATION OF STUDY MEDICATION.
  9. LIPITOR [Concomitant]
     Dosage: START PRIOR TO INITIATION OF STUDY MEDICATION.

REACTIONS (14)
  - ALTERED STATE OF CONSCIOUSNESS [None]
  - BLOOD CHLORIDE DECREASED [None]
  - BLOOD CHROMIUM INCREASED [None]
  - BLOOD GLUCOSE INCREASED [None]
  - BLOOD UREA INCREASED [None]
  - CONVULSION [None]
  - FLUID RETENTION [None]
  - HAEMATOCRIT DECREASED [None]
  - HAEMOGLOBIN DECREASED [None]
  - HEADACHE [None]
  - HYPONATRAEMIA [None]
  - LOSS OF CONSCIOUSNESS [None]
  - SYNCOPE [None]
  - VOMITING [None]
